FAERS Safety Report 25633278 (Version 2)
Quarter: 2025Q3

REPORT INFORMATION
  Report Type: Report from Study
  Country: US (occurrence: US)
  Receive Date: 20250801
  Receipt Date: 20250822
  Transmission Date: 20251021
  Serious: No
  Sender: SUNOVION
  Company Number: US-SUMITOMO PHARMA SWITZERLAND GMBH-2025SPA009682

PATIENT
  Age: 59 Year
  Sex: Male

DRUGS (13)
  1. ORGOVYX [Suspect]
     Active Substance: RELUGOLIX
     Indication: Prostate cancer
     Route: 048
  2. ORGOVYX [Suspect]
     Active Substance: RELUGOLIX
     Route: 048
  3. AZELASTINE [Concomitant]
     Active Substance: AZELASTINE
  4. COLACE [Concomitant]
     Active Substance: DOCUSATE SODIUM
  5. CYCLOBENZAPRINE [Concomitant]
     Active Substance: CYCLOBENZAPRINE
  6. FLONASE [Concomitant]
     Active Substance: FLUTICASONE PROPIONATE
  7. GABAPENTIN [Concomitant]
     Active Substance: GABAPENTIN
  8. VITAMINS [Concomitant]
     Active Substance: VITAMINS
  9. Nauzene [Concomitant]
  10. TADALAFIL [Concomitant]
     Active Substance: TADALAFIL
  11. TYLENOL [Concomitant]
     Active Substance: ACETAMINOPHEN
  12. ZYRTEC [Concomitant]
     Active Substance: CETIRIZINE HYDROCHLORIDE
  13. ADVIL [Concomitant]
     Active Substance: IBUPROFEN

REACTIONS (4)
  - Sinus disorder [Unknown]
  - Nasopharyngitis [Unknown]
  - Hypersensitivity [Unknown]
  - Nausea [Unknown]

NARRATIVE: CASE EVENT DATE: 20250721
